FAERS Safety Report 17505705 (Version 1)
Quarter: 2020Q1

REPORT INFORMATION
  Report Type: Spontaneous
  Country: IR (occurrence: IR)
  Receive Date: 20200305
  Receipt Date: 20200305
  Transmission Date: 20200409
  Serious: Yes (Other)
  Sender: FDA-Public Use
  Company Number: IR-BAUSCH-BL-2020-005474

PATIENT
  Age: 37 Year
  Sex: Male

DRUGS (9)
  1. RIFAMPIN. [Concomitant]
     Active Substance: RIFAMPIN
     Indication: PULMONARY TUBERCULOSIS
  2. PYRAZINAMIDE. [Concomitant]
     Active Substance: PYRAZINAMIDE
     Indication: CENTRAL NERVOUS SYSTEM LESION
  3. ETHAMBUTOL [Concomitant]
     Active Substance: ETHAMBUTOL HYDROCHLORIDE
     Indication: PULMONARY TUBERCULOSIS
  4. ETHAMBUTOL [Concomitant]
     Active Substance: ETHAMBUTOL HYDROCHLORIDE
     Indication: CENTRAL NERVOUS SYSTEM LESION
  5. DEXAMETHASONE. [Suspect]
     Active Substance: DEXAMETHASONE
     Indication: PRODUCT USED FOR UNKNOWN INDICATION
     Dosage: DIVIDED DOSE
     Route: 042
  6. ISONIAZID. [Concomitant]
     Active Substance: ISONIAZID
     Indication: PULMONARY TUBERCULOSIS
  7. PYRAZINAMIDE. [Concomitant]
     Active Substance: PYRAZINAMIDE
     Indication: PULMONARY TUBERCULOSIS
  8. ISONIAZID. [Concomitant]
     Active Substance: ISONIAZID
     Indication: CENTRAL NERVOUS SYSTEM LESION
  9. RIFAMPIN. [Concomitant]
     Active Substance: RIFAMPIN
     Indication: CENTRAL NERVOUS SYSTEM LESION

REACTIONS (1)
  - Nosocomial infection [Recovered/Resolved]
